FAERS Safety Report 7457346-2 (Version None)
Quarter: 2011Q2

REPORT INFORMATION
  Report Type: 
  Country: None (occurrence: None)
  Receive Date: 20110504
  Receipt Date: 20100621
  Transmission Date: 20111010
  Serious: No
  Sender: FDA-Public Use
  Company Number: US-SANOFI-AVENTIS-2010SA036361

PATIENT
  Age: 71 Year
  Sex: Female

DRUGS (12)
  1. APIDRA [Suspect]
     Dosage: ON SLIDING SCALE WITH MEALS. DOSE:20 UNIT(S)
     Route: 058
     Dates: start: 20100601
  2. LANTUS [Suspect]
     Dosage: DOSE:50 UNIT(S)
     Route: 058
     Dates: start: 20100601
  3. APIDRA [Suspect]
     Dosage: ON SLIDING SCALE WITH MEALS. DOSE:20 UNIT(S)
     Route: 058
     Dates: start: 20100601
  4. SOLOSTAR [Suspect]
     Dates: start: 20100601
  5. SOLOSTAR [Suspect]
     Dates: start: 20100601
  6. SOLOSTAR [Suspect]
     Indication: TYPE 2 DIABETES MELLITUS
     Dates: start: 20100601
  7. LANTUS [Suspect]
     Dosage: DOSE:50 UNIT(S)
     Route: 058
     Dates: start: 20100601
  8. SOLOSTAR [Suspect]
     Dates: start: 20100601
  9. LANTUS [Suspect]
     Indication: TYPE 2 DIABETES MELLITUS
     Dosage: DOSE:50 UNIT(S)
     Route: 058
     Dates: start: 20100601
  10. APIDRA [Suspect]
     Indication: TYPE 2 DIABETES MELLITUS
     Dosage: ON SLIDING SCALE WITH MEALS. DOSE:20 UNIT(S)
     Route: 058
     Dates: start: 20100601
  11. SOLOSTAR [Suspect]
     Dates: start: 20100601
  12. SOLOSTAR [Suspect]
     Dates: start: 20100601

REACTIONS (3)
  - BLOOD GLUCOSE INCREASED [None]
  - VISION BLURRED [None]
  - FATIGUE [None]
